FAERS Safety Report 23033447 (Version 2)
Quarter: 2023Q4

REPORT INFORMATION
  Report Type: Report from Study
  Country: DE (occurrence: DE)
  Receive Date: 20231005
  Receipt Date: 20231024
  Transmission Date: 20240110
  Serious: Yes (Hospitalization)
  Sender: FDA-Public Use
  Company Number: DE-SA-2020SA185735

PATIENT
  Age: 69 Year
  Sex: Female
  Weight: 63 kg

DRUGS (2)
  1. DUPILUMAB [Suspect]
     Active Substance: DUPILUMAB
     Indication: Dermatitis atopic
     Dosage: UNK, QOW
     Route: 058
     Dates: start: 20200512
  2. PENICILLIN [Concomitant]
     Active Substance: PENICILLIN
     Indication: Erysipelas
     Dosage: 150 MG, QD
     Route: 042
     Dates: start: 20200630, end: 20200630

REACTIONS (2)
  - Syncope [Recovered/Resolved]
  - Drug eruption [Not Recovered/Not Resolved]

NARRATIVE: CASE EVENT DATE: 20200629
